FAERS Safety Report 9629436 (Version 1)
Quarter: 2013Q4

REPORT INFORMATION
  Report Type: Spontaneous
  Country: US (occurrence: US)
  Receive Date: 20131017
  Receipt Date: 20131017
  Transmission Date: 20140711
  Serious: No
  Sender: FDA-Public Use
  Company Number: US-ASTRAZENECA-2013SE53590

PATIENT
  Age: 38 Year
  Sex: Female

DRUGS (3)
  1. CRESTOR [Suspect]
     Route: 048
     Dates: start: 201008
  2. CRESTOR [Suspect]
     Route: 048
     Dates: start: 2012
  3. VITAMIN D [Concomitant]

REACTIONS (1)
  - Weight increased [Unknown]
